FAERS Safety Report 8299766-2 (Version None)
Quarter: 2012Q2

REPORT INFORMATION
  Report Type: 
  Country: None (occurrence: None)
  Receive Date: 20120419
  Receipt Date: 20120413
  Transmission Date: 20120825
  Serious: Yes (Hospitalization)
  Sender: FDA-Public Use
  Company Number: US-MERCK-1202USA02454

PATIENT
  Age: 64 Year
  Sex: Female

DRUGS (7)
  1. ZYRTEC [Concomitant]
     Route: 048
  2. IMIPRAMINE HYDROCHLORIDE [Concomitant]
     Route: 048
  3. PREMARIN [Concomitant]
     Route: 048
  4. VITAMINS (UNSPECIFIED) [Concomitant]
     Route: 048
  5. LOVENOX [Concomitant]
     Indication: THROMBOSIS PROPHYLAXIS
     Dosage: FOR 20 DAYS
     Route: 058
  6. FOSAMAX [Suspect]
     Indication: OSTEOPOROSIS
     Route: 048
     Dates: end: 20070101
  7. CALCIUM ACETATE [Concomitant]
     Route: 048

REACTIONS (11)
  - CHRONIC SINUSITIS [None]
  - DEVICE FAILURE [None]
  - HAEMATOMA [None]
  - HYPERLIPIDAEMIA [None]
  - LOW TURNOVER OSTEOPATHY [None]
  - ANAEMIA [None]
  - FRACTURE NONUNION [None]
  - ANXIETY [None]
  - DEPRESSION [None]
  - FEMUR FRACTURE [None]
  - OSTEOARTHRITIS [None]
